FAERS Safety Report 9847262 (Version 2)
Quarter: 2014Q1

REPORT INFORMATION
  Report Type: Spontaneous
  Country: US (occurrence: US)
  Receive Date: 20140127
  Receipt Date: 20140127
  Transmission Date: 20141002
  Serious: Yes (Hospitalization)
  Sender: FDA-Public Use
  Company Number: US-DYAX CORP.-2012DX000219

PATIENT
  Age: 71 Year
  Sex: Female
  Weight: 76.2 kg

DRUGS (4)
  1. KALBITOR [Suspect]
     Indication: HEREDITARY ANGIOEDEMA
     Route: 058
     Dates: start: 20120916, end: 20120916
  2. KALBITOR [Suspect]
     Route: 058
     Dates: start: 20120924, end: 20120924
  3. KALBITOR [Suspect]
     Route: 058
     Dates: start: 20120925, end: 20120925
  4. KALBITOR [Suspect]
     Route: 058
     Dates: start: 20120724

REACTIONS (2)
  - Hereditary angioedema [Recovered/Resolved]
  - Photopsia [Recovered/Resolved]
